FAERS Safety Report 4390058-0 (Version None)
Quarter: 2004Q3

REPORT INFORMATION
  Report Type: 
  Country: None (occurrence: None)
  Receive Date: 20040701
  Receipt Date: 20040701
  Transmission Date: 20050211
  Serious: No
  Sender: FDA-Public Use
  Company Number: None

PATIENT
  Age: 63 Year
  Sex: Male

DRUGS (2)
  1. HYDROCODONE BITARTRATE + ACETAMINOPHEN [Suspect]
     Dosage: TABLET, 5/500
  2. SULFAMETHOXAZOLE AND TRIMETHOPRIM [Suspect]
     Dosage: TABLET 800 MG/160 MG

REACTIONS (1)
  - MEDICATION ERROR [None]
